FAERS Safety Report 6602961-9 (Version None)
Quarter: 2010Q1

REPORT INFORMATION
  Report Type: 
  Country: None (occurrence: None)
  Receive Date: 20100226
  Receipt Date: 20100203
  Transmission Date: 20100710
  Serious: Yes (Hospitalization)
  Sender: FDA-Public Use
  Company Number: DE-JNJFOC-20100201510

PATIENT
  Age: 39 Year
  Sex: Female

DRUGS (6)
  1. TAVANIC [Suspect]
     Indication: NASOPHARYNGITIS
     Route: 048
  2. PREDNISOLONE [Interacting]
     Indication: COLITIS ULCERATIVE
     Route: 048
  3. MESALAZINE [Concomitant]
     Indication: COLITIS ULCERATIVE
     Route: 065
  4. PROGRAF [Concomitant]
     Indication: COLITIS ULCERATIVE
     Route: 065
  5. CALCIUM CARBONATE / CHOLECALCIFEROL [Concomitant]
     Indication: OSTEOPOROSIS PROPHYLAXIS
     Route: 065
  6. SALOFALK [Concomitant]
     Indication: COLITIS ULCERATIVE
     Route: 065

REACTIONS (3)
  - DIARRHOEA [None]
  - DRUG INTERACTION [None]
  - TRANSAMINASES INCREASED [None]
